FAERS Safety Report 4691879-7 (Version None)
Quarter: 2005Q2

REPORT INFORMATION
  Report Type: 
  Country: None (occurrence: None)
  Receive Date: 20050614
  Receipt Date: 20050614
  Transmission Date: 20051028
  Serious: Yes (Other)
  Sender: FDA-Public Use
  Company Number: None

PATIENT
  Sex: Male
  Weight: 81.1939 kg

DRUGS (6)
  1. ALDARA [Suspect]
     Indication: SKIN CANCER
     Dosage: TOPICALLY ON FACE
     Route: 061
     Dates: start: 20050531, end: 20050604
  2. CARTIA XT [Concomitant]
  3. LASIX [Concomitant]
  4. LANOXIN [Concomitant]
  5. COUMADIN [Concomitant]
  6. PLAVIX [Concomitant]

REACTIONS (6)
  - EYELID OEDEMA [None]
  - OEDEMA MOUTH [None]
  - RASH ERYTHEMATOUS [None]
  - RASH PRURITIC [None]
  - RASH SCALY [None]
  - SKIN NODULE [None]
